FAERS Safety Report 8259283-2 (Version None)
Quarter: 2012Q2

REPORT INFORMATION
  Report Type: 
  Country: None (occurrence: None)
  Receive Date: 20120404
  Receipt Date: 20120326
  Transmission Date: 20120825
  Serious: Yes (Other)
  Sender: FDA-Public Use
  Company Number: US-ASTRAZENECA-2011SE72174

PATIENT
  Age: 32 Year
  Sex: Female

DRUGS (5)
  1. SYMBICORT [Suspect]
     Indication: ASTHMA
     Dosage: 2 PUFFS BID
     Route: 055
  2. PNV [Concomitant]
     Dates: start: 20110907
  3. FIORICET [Concomitant]
     Indication: HEADACHE
     Dosage: 2 G 40 PIN
     Dates: start: 20110926
  4. DILTIAZEM HCL [Concomitant]
     Dates: start: 20111130
  5. ALBUTEROL [Concomitant]

REACTIONS (7)
  - CEREBROVASCULAR ACCIDENT [None]
  - ANKYLOSING SPONDYLITIS [None]
  - ASTHMA [None]
  - ENCEPHALITIS [None]
  - MATERNAL EXPOSURE DURING PREGNANCY [None]
  - GESTATIONAL DIABETES [None]
  - TACHYCARDIA [None]
